FAERS Safety Report 12635962 (Version 3)
Quarter: 2016Q4

REPORT INFORMATION
  Report Type: Spontaneous
  Country: IT (occurrence: IT)
  Receive Date: 20160809
  Receipt Date: 20161017
  Transmission Date: 20170207
  Serious: Yes (Other)
  Sender: FDA-Public Use
  Company Number: IT-ROCHE-1537586

PATIENT
  Age: 63 Year
  Sex: Female
  Weight: 62 kg

DRUGS (7)
  1. VINCRISTINE [Suspect]
     Active Substance: VINCRISTINE
     Indication: BREAST CANCER RECURRENT
     Dosage: 19/NOV/2014, RECEIVED CYCLE
     Route: 042
     Dates: start: 20140328, end: 20141119
  2. METFORMIN [Concomitant]
     Active Substance: METFORMIN HYDROCHLORIDE
     Route: 048
  3. HERCEPTIN [Suspect]
     Active Substance: TRASTUZUMAB
     Indication: BREAST CANCER RECURRENT
     Dosage: 19/NOV/2014, RECEIVED CYCLE.
     Route: 042
     Dates: start: 20140328
  4. HALAVEN [Suspect]
     Active Substance: ERIBULIN MESYLATE
     Indication: BREAST CANCER RECURRENT
     Dosage: ON 27/APR/2016, RECEIVED SECOND CYCLE.
     Route: 042
     Dates: start: 20160224
  5. ZYLORIC [Concomitant]
     Active Substance: ALLOPURINOL
     Indication: BREAST CANCER RECURRENT
     Route: 048
  6. LOPID [Concomitant]
     Active Substance: GEMFIBROZIL
  7. HERCEPTIN [Suspect]
     Active Substance: TRASTUZUMAB
     Dosage: ON 27/APR/2016, RECEIVED SECOND CYCLE.
     Route: 042
     Dates: start: 20160224

REACTIONS (1)
  - Hyperglycaemia [Recovering/Resolving]

NARRATIVE: CASE EVENT DATE: 20140624
